FAERS Safety Report 9351475 (Version 1)
Quarter: 2013Q2

REPORT INFORMATION
  Report Type: Report from Study
  Country: FR (occurrence: FR)
  Receive Date: 20130617
  Receipt Date: 20130617
  Transmission Date: 20140414
  Serious: Yes (Other)
  Sender: FDA-Public Use
  Company Number: FR-GENZYME-CAMP-1002973

PATIENT
  Age: 85 Year
  Sex: Female

DRUGS (3)
  1. CAMPATH [Suspect]
     Indication: T-CELL PROLYMPHOCYTIC LEUKAEMIA
     Dosage: UNK (3 INJECTIONS PER WEEK)
     Route: 058
     Dates: start: 20130122
  2. CAMPATH [Suspect]
     Dosage: UNK (3 INJECTIONS PER WEEK)
     Route: 042
     Dates: end: 20130213
  3. PENTOSTATIN [Concomitant]
     Indication: T-CELL PROLYMPHOCYTIC LEUKAEMIA
     Dosage: UNK
     Route: 042

REACTIONS (3)
  - Drug ineffective [Unknown]
  - Injection site rash [Recovered/Resolved]
  - Injection site haemorrhage [Recovered/Resolved]
